FAERS Safety Report 26173437 (Version 1)
Quarter: 2025Q4

REPORT INFORMATION
  Report Type: Spontaneous
  Country: EG (occurrence: EG)
  Receive Date: 20251218
  Receipt Date: 20251218
  Transmission Date: 20260117
  Serious: Yes (Hospitalization, Other)
  Sender: HIKMA
  Company Number: EG-HIKMA PHARMACEUTICALS-EG-H14001-25-13132

PATIENT
  Age: 58 Year
  Sex: Male
  Weight: 62 kg

DRUGS (4)
  1. DOCETAXEL [Suspect]
     Active Substance: DOCETAXEL
     Indication: Gastric cancer
     Dosage: 80 MILLIGRAM
     Route: 042
     Dates: start: 20250814, end: 2025
  2. LEUCOVORIN CALCIUM [Suspect]
     Active Substance: LEUCOVORIN CALCIUM
     Indication: Gastric cancer
     Dosage: 320 MG
     Route: 042
     Dates: start: 20250814, end: 2025
  3. OXALIPLATIN [Suspect]
     Active Substance: OXALIPLATIN
     Indication: Gastric cancer
     Dosage: 136 MG
     Route: 042
     Dates: start: 20250814, end: 2025
  4. FLUOROURACIL [Suspect]
     Active Substance: FLUOROURACIL
     Indication: Gastric cancer
     Dosage: 4160 MG (DIVIDED INTO TWO BOTTLE EACH ONE 2080 MG OVER 11 HOURS / BOTTLE)
     Route: 042
     Dates: start: 20250814, end: 2025

REACTIONS (2)
  - Hypochromic anaemia [Recovered/Resolved]
  - Thrombocytopenia [Recovered/Resolved]

NARRATIVE: CASE EVENT DATE: 20250826
